FAERS Safety Report 4983580-7 (Version None)
Quarter: 2006Q2

REPORT INFORMATION
  Report Type: 
  Country: None (occurrence: None)
  Receive Date: 20060426
  Receipt Date: 20060417
  Transmission Date: 20061013
  Serious: Yes (Other)
  Sender: FDA-Public Use
  Company Number: US-JNJFOC-20060403875

PATIENT
  Sex: Female
  Weight: 10.43 kg

DRUGS (2)
  1. TOPAMAX [Suspect]
     Dosage: 3 AM AND 4 PM DAILY
     Route: 048
     Dates: start: 20041201
  2. KEPPRA [Concomitant]
     Dosage: ^COMBO WITH TOPAMAX IN PAST ONLY^

REACTIONS (2)
  - BREAST SWELLING [None]
  - MASS [None]
